FAERS Safety Report 6398615-7 (Version None)
Quarter: 2009Q4

REPORT INFORMATION
  Report Type: 
  Country: None (occurrence: None)
  Receive Date: 20091013
  Receipt Date: 20091002
  Transmission Date: 20100525
  Serious: Yes (Other)
  Sender: FDA-Public Use
  Company Number: US-JNJFOC-20091003994

PATIENT
  Sex: Female

DRUGS (1)
  1. DOXIL [Suspect]
     Indication: SARCOMA
     Route: 042
     Dates: start: 20021002, end: 20030301

REACTIONS (5)
  - DECREASED APPETITE [None]
  - NAUSEA [None]
  - OFF LABEL USE [None]
  - PALMAR-PLANTAR ERYTHRODYSAESTHESIA SYNDROME [None]
  - VOMITING [None]
